FAERS Safety Report 6830107-0 (Version None)
Quarter: 2010Q3

REPORT INFORMATION
  Report Type: 
  Country: None (occurrence: None)
  Receive Date: 20100711
  Receipt Date: 20100520
  Transmission Date: 20110219
  Serious: No
  Sender: FDA-Public Use
  Company Number: US-ALLERGAN-1006618US

PATIENT
  Age: 62 Year
  Sex: Female

DRUGS (7)
  1. LATISSE [Suspect]
     Indication: GROWTH OF EYELASHES
     Dosage: 1 GTT, QHS
     Route: 061
  2. ACTONEL [Concomitant]
  3. CYTOMEL [Concomitant]
  4. LEVOTHYROXINE SODIUM [Concomitant]
  5. PROMETRIUM [Concomitant]
  6. VIVELLE [Concomitant]
  7. MULTI-VITAMIN [Concomitant]
     Dosage: 1 GTT, QHS

REACTIONS (2)
  - DRUG ADMINISTRATION ERROR [None]
  - ERYTHEMA OF EYELID [None]
